FAERS Safety Report 16274721 (Version 1)
Quarter: 2019Q2

REPORT INFORMATION
  Report Type: Spontaneous
  Country: US (occurrence: US)
  Receive Date: 20190504
  Receipt Date: 20190504
  Transmission Date: 20190711
  Serious: Yes (Other)
  Sender: FDA-Public Use
  Company Number: US-BRISTOL-MYERS SQUIBB COMPANY-BMS-2019-042745

PATIENT
  Sex: Female
  Weight: 85.28 kg

DRUGS (4)
  1. ELIQUIS [Suspect]
     Active Substance: APIXABAN
     Indication: CEREBROVASCULAR ACCIDENT PROPHYLAXIS
     Dosage: 5 MILLIGRAM, BID
     Route: 048
  2. ZOLOFT [Concomitant]
     Active Substance: SERTRALINE HYDROCHLORIDE
     Indication: PREMENSTRUAL SYNDROME
     Dosage: 100 MILLIGRAM, QD
     Route: 048
  3. PREMARIN [Suspect]
     Active Substance: ESTROGENS, CONJUGATED
     Indication: PREMENSTRUAL SYNDROME
     Dosage: 1.25 MILLIGRAM, QD
     Route: 048
     Dates: start: 1993
  4. PROGESTERONE. [Concomitant]
     Active Substance: PROGESTERONE
     Indication: PREMENSTRUAL SYNDROME
     Route: 065

REACTIONS (4)
  - Barrett^s oesophagus [Unknown]
  - Thinking abnormal [Unknown]
  - Nervousness [Unknown]
  - Anxiety [Unknown]
